FAERS Safety Report 23382369 (Version 1)
Quarter: 2024Q1

REPORT INFORMATION
  Report Type: Spontaneous
  Country: US (occurrence: US)
  Receive Date: 20240109
  Receipt Date: 20240109
  Transmission Date: 20240410
  Serious: No
  Sender: FDA-Public Use
  Company Number: US-SIGMAPHARM LABORATORIES, LLC-2023SIG00024

PATIENT
  Sex: Female

DRUGS (5)
  1. LIOTHYRONINE SODIUM [Suspect]
     Active Substance: LIOTHYRONINE SODIUM
     Indication: Hypothyroidism
     Dosage: UNK
     Route: 048
  2. LIOTHYRONINE SODIUM [Suspect]
     Active Substance: LIOTHYRONINE SODIUM
     Dosage: 5 ?G, 1X/DAY
     Route: 048
     Dates: start: 2023, end: 2023
  3. LIOTHYRONINE SODIUM [Suspect]
     Active Substance: LIOTHYRONINE SODIUM
     Dosage: 5 ?G, 1X/DAY
     Route: 048
     Dates: start: 2023
  4. LEVOTHYROXINE [Concomitant]
     Active Substance: LEVOTHYROXINE
  5. LOSARTAN [Concomitant]
     Active Substance: LOSARTAN
     Dosage: ^LOW DOSE^

REACTIONS (7)
  - Disturbance in attention [Not Recovered/Not Resolved]
  - Tremor [Not Recovered/Not Resolved]
  - Anxiety [Not Recovered/Not Resolved]
  - Muscle spasms [Not Recovered/Not Resolved]
  - Abdominal pain [Not Recovered/Not Resolved]
  - Urticaria [Not Recovered/Not Resolved]
  - Manufacturing materials issue [Not Recovered/Not Resolved]

NARRATIVE: CASE EVENT DATE: 20230101
